FAERS Safety Report 5064891-6 (Version None)
Quarter: 2006Q3

REPORT INFORMATION
  Report Type: 
  Country: None (occurrence: None)
  Receive Date: 20060725
  Receipt Date: 20060710
  Transmission Date: 20061208
  Serious: Yes (Other)
  Sender: FDA-Public Use
  Company Number: USA040979735

PATIENT
  Sex: Male

DRUGS (9)
  1. INSULIN [Suspect]
     Dates: start: 19800101
  2. INSULIN, ANIMAL (INSULIN, ANIMAL) VIAL [Suspect]
     Dates: start: 19800101
  3. HUMULIN R [Suspect]
     Indication: PANCREATIC DISORDER
  4. HUMULIN R [Suspect]
     Indication: PANCREATIC DISORDER
  5. ILETIN [Suspect]
     Indication: PANCREATIC DISORDER
  6. INSULIN [Suspect]
  7. HUMULIN HUMAN INSULIN (RDNA ORIGIN) NPH UNKNOWN FORMULATION) UNKNOWN [Suspect]
     Indication: PANCREATIC DISORDER
  8. HUMULIN HUMAN INSULIN (RDNA ORIGIN) ULTRALENTE UNKNOWN FORMULATION) UN [Suspect]
     Indication: PANCREATIC DISORDER
  9. INSULIN [Suspect]
     Indication: DIABETES MELLITUS INSULIN-DEPENDENT
     Dates: start: 19910101, end: 19910101

REACTIONS (7)
  - ARTERIAL OCCLUSIVE DISEASE [None]
  - BLOOD GLUCOSE DECREASED [None]
  - CARDIOVASCULAR DISORDER [None]
  - JOINT RECONSTRUCTION [None]
  - KNEE ARTHROPLASTY [None]
  - MUSCULAR WEAKNESS [None]
  - PAIN IN EXTREMITY [None]
